FAERS Safety Report 8620052 (Version 2)
Quarter: 2013Q1

REPORT INFORMATION
  Report Type: Report from Study
  Country: DE (occurrence: DE)
  Receive Date: 20120618
  Receipt Date: 20130129
  Transmission Date: 20140127
  Serious: Yes (Hospitalization)
  Sender: FDA-Public Use
  Company Number: DE-JNJFOC-20120518805

PATIENT
  Age: 59 Year
  Sex: Female
  Weight: 61 kg

DRUGS (3)
  1. REMICADE [Suspect]
     Indication: COLITIS ULCERATIVE
     Route: 042
     Dates: start: 20080428
  2. SALOFALK [Concomitant]
     Indication: COLITIS
     Route: 048
  3. BUDENOFALK [Concomitant]
     Indication: COLITIS
     Route: 048

REACTIONS (1)
  - Meniere^s disease [Recovered/Resolved]
